FAERS Safety Report 12503338 (Version 1)
Quarter: 2016Q2

REPORT INFORMATION
  Report Type: Spontaneous
  Country: US (occurrence: None)
  Receive Date: 20160627
  Receipt Date: 20160627
  Transmission Date: 20160815
  Serious: No
  Sender: FDA-Public Use
  Company Number: None

PATIENT
  Age: 59 Year
  Sex: Female

DRUGS (1)
  1. IBRANCE [Suspect]
     Active Substance: PALBOCICLIB
     Indication: BREAST CANCER
     Dosage: 125 MG CAP 1-QD PO
     Route: 048
     Dates: start: 20151013

REACTIONS (4)
  - White blood cell count decreased [None]
  - Skin fissures [None]
  - Oedema peripheral [None]
  - Fatigue [None]

NARRATIVE: CASE EVENT DATE: 201605
